FAERS Safety Report 18630479 (Version 1)
Quarter: 2020Q4

REPORT INFORMATION
  Report Type: Spontaneous
  Country: US (occurrence: US)
  Receive Date: 20201217
  Receipt Date: 20201217
  Transmission Date: 20210114
  Serious: No
  Sender: FDA-Public Use
  Company Number: US-SUNOVION-2020SUN003633

PATIENT
  Sex: Female

DRUGS (3)
  1. ZIPRASIDONE. [Concomitant]
     Active Substance: ZIPRASIDONE
     Dosage: UNK
  2. SEROQUEL [Concomitant]
     Active Substance: QUETIAPINE FUMARATE
     Dosage: UNK
  3. LATUDA [Suspect]
     Active Substance: LURASIDONE HYDROCHLORIDE
     Indication: BIPOLAR DISORDER
     Dosage: 20 MG, BID
     Route: 048

REACTIONS (2)
  - Energy increased [Unknown]
  - Off label use [Unknown]
